FAERS Safety Report 8157604-2 (Version None)
Quarter: 2012Q1

REPORT INFORMATION
  Report Type: 
  Country: None (occurrence: None)
  Receive Date: 20120222
  Receipt Date: 20110309
  Transmission Date: 20120608
  Serious: No
  Sender: FDA-Public Use
  Company Number: US-ASTRAZENECA-2011SE13497

PATIENT

DRUGS (1)
  1. ATENOLOL [Suspect]
     Route: 048

REACTIONS (2)
  - ADVERSE DRUG REACTION [None]
  - DRUG ERUPTION [None]
